FAERS Safety Report 4360519-9 (Version None)
Quarter: 2004Q2

REPORT INFORMATION
  Report Type: 
  Country: None (occurrence: None)
  Receive Date: 20040519
  Receipt Date: 20040507
  Transmission Date: 20050107
  Serious: Yes (Hospitalization)
  Sender: FDA-Public Use
  Company Number: FR-BRISTOL-MYERS SQUIBB COMPANY-12582177

PATIENT
  Age: 5 Year
  Sex: Female
  Weight: 19 kg

DRUGS (4)
  1. NIFLURIL [Suspect]
     Indication: CRANIAL NERVE DISORDER
     Route: 054
     Dates: end: 20040320
  2. MUCOMYST [Suspect]
     Indication: OTITIS MEDIA
     Dosage: DOSAGE: 200MG/5ML
     Route: 048
     Dates: end: 20040320
  3. PNEUMOREL [Suspect]
     Indication: OTITIS MEDIA
     Route: 054
     Dates: end: 20040320
  4. ORELOX [Suspect]
     Indication: OTITIS MEDIA
     Dosage: DOSAGE: 40MG/5ML GRANULE FOR ORAL SOLUTION
     Route: 048
     Dates: start: 20040315, end: 20040319

REACTIONS (3)
  - GAIT DISTURBANCE [None]
  - OEDEMA PERIPHERAL [None]
  - PAIN [None]
